FAERS Safety Report 6888116-1 (Version None)
Quarter: 2010Q3

REPORT INFORMATION
  Report Type: 
  Country: None (occurrence: None)
  Receive Date: 20100708
  Receipt Date: 20091019
  Transmission Date: 20110219
  Serious: Yes (Other)
  Sender: FDA-Public Use
  Company Number: 2009285313

PATIENT
  Age: 60 Year
  Sex: Male
  Weight: 123 kg

DRUGS (10)
  1. CHANTIX [Suspect]
     Indication: SMOKING CESSATION THERAPY
     Dosage: 1 MG, 2X/DAY, ORAL
     Route: 048
     Dates: start: 20080601
  2. CHANTIX [Suspect]
     Indication: TOBACCO USER
     Dosage: 1 MG, 2X/DAY, ORAL
     Route: 048
     Dates: start: 20080601
  3. HYDROXYZINE [Concomitant]
  4. SIMVASTATIN [Concomitant]
  5. CITALOPRAM HYDROBROMIDE [Concomitant]
  6. PREGABALIN [Concomitant]
  7. IBUPROFEN [Concomitant]
  8. AMITRIPTYLINE HYDROCHLORIDE [Concomitant]
  9. FUROSEMIDE [Concomitant]
  10. LISINOPRIL [Concomitant]

REACTIONS (3)
  - DEPRESSED MOOD [None]
  - HOMICIDAL IDEATION [None]
  - SUICIDAL BEHAVIOUR [None]
